FAERS Safety Report 7621066-1 (Version None)
Quarter: 2011Q3

REPORT INFORMATION
  Report Type: 
  Country: None (occurrence: None)
  Receive Date: 20110719
  Receipt Date: 20110304
  Transmission Date: 20111222
  Serious: No
  Sender: FDA-Public Use
  Company Number: US-KINGPHARMUSA00001-K201100228

PATIENT
  Age: 70 Year
  Sex: Female
  Weight: 81.633 kg

DRUGS (2)
  1. ATIVAN [Concomitant]
  2. LEVOXYL [Suspect]
     Indication: THYROIDECTOMY
     Dosage: 100 MCG, QD
     Route: 048
     Dates: end: 20110101

REACTIONS (1)
  - SENSATION OF FOREIGN BODY [None]
